FAERS Safety Report 4986738-6 (Version None)
Quarter: 2006Q2

REPORT INFORMATION
  Report Type: 
  Country: None (occurrence: None)
  Receive Date: 20060428
  Receipt Date: 20050919
  Transmission Date: 20061013
  Serious: Yes (Hospitalization, Disabling)
  Sender: FDA-Public Use
  Company Number: NO-MERCK-0509NOR00025

PATIENT
  Age: 63 Year
  Sex: Female

DRUGS (27)
  1. VIOXX [Suspect]
     Indication: RHEUMATOID ARTHRITIS
     Route: 048
     Dates: start: 20011201, end: 20041001
  2. CAPTOPRIL [Concomitant]
     Indication: HYPERTENSION
     Route: 065
  3. ZOCOR [Concomitant]
     Indication: HYPERCHOLESTEROLAEMIA
     Route: 048
  4. GABAPENTIN [Concomitant]
     Route: 065
  5. FOSAMAX [Concomitant]
     Indication: OSTEOPOROSIS
     Route: 048
  6. INSULIN [Concomitant]
     Route: 065
  7. ESOMEPRAZOLE MAGNESIUM [Concomitant]
     Route: 048
  8. GABAPENTIN [Concomitant]
     Indication: MUSCLE SPASMS
     Route: 048
  9. ASPIRIN AND MAGNESIUM OXIDE [Concomitant]
     Route: 048
  10. CLONAZEPAM [Concomitant]
     Indication: MUSCLE SPASMS
     Route: 048
  11. FUROSEMIDE SODIUM [Concomitant]
     Route: 065
  12. NITROGLYCERIN [Concomitant]
     Route: 065
  13. ESTRADIOL AND NORETHINDRONE ACETATE [Concomitant]
     Route: 065
  14. BAMBUTEROL HYDROCHLORIDE [Concomitant]
     Route: 065
  15. BETAMETHASONE VALERATE [Concomitant]
     Route: 065
  16. TERBUTALINE SULFATE [Concomitant]
     Route: 065
  17. CLONIDINE HYDROCHLORIDE [Concomitant]
     Route: 065
  18. BETAMETHASONE DIPROPIONATE AND SALICYLIC ACID [Concomitant]
     Route: 065
  19. NITROFURANTOIN [Concomitant]
     Route: 065
  20. GLUCAGON [Concomitant]
     Route: 065
  21. EBASTINE [Concomitant]
     Route: 065
  22. BUDESONIDE [Concomitant]
     Route: 065
  23. BUDESONIDE [Concomitant]
     Route: 065
  24. SALMETEROL XINAFOATE [Concomitant]
     Route: 065
  25. DESOXIMETASONE [Concomitant]
     Route: 065
  26. CAFFEINE AND CHLORCYCLIZINE HYDROCHLORIDE AND ERGOTAMINE TARTRATE AND [Concomitant]
     Route: 065
  27. HYDROCORTISONE BUTYRATE [Concomitant]
     Route: 065

REACTIONS (5)
  - ANGINA PECTORIS [None]
  - ANOXIC ENCEPHALOPATHY [None]
  - KETOACIDOSIS [None]
  - MYOCARDIAL INFARCTION [None]
  - NEUROMYOPATHY [None]
